FAERS Safety Report 7911941-2 (Version None)
Quarter: 2011Q4

REPORT INFORMATION
  Report Type: 
  Country: None (occurrence: None)
  Receive Date: 20111102
  Receipt Date: 20110425
  Transmission Date: 20120403
  Serious: Yes (Other)
  Sender: FDA-Public Use
  Company Number: AUR-APL-2011-01520

PATIENT
  Age: 60 Year
  Sex: Male
  Weight: 62.13 kg

DRUGS (6)
  1. QUINAPRIL HYDROCHLORIDE [Suspect]
     Dosage: 5MG-DAILY-ORAL
     Route: 048
  2. ASPIRIN [Suspect]
     Dosage: 81MG-DAILY
  3. PLAVIX [Suspect]
     Indication: ARTERIAL OCCLUSIVE DISEASE
     Dosage: 75MG-DAILY-ORAL
     Route: 048
  4. METOPROLOL TARTRATE [Suspect]
     Indication: ARTERIAL OCCLUSIVE DISEASE
     Dosage: 25MG-BID
  5. LIPITOR [Suspect]
     Indication: ARTERIAL OCCLUSIVE DISEASE
     Dosage: 80MG-DAILY-ORAL
     Route: 048
     Dates: start: 20080201
  6. LISINOPRIL [Concomitant]

REACTIONS (1)
  - DIZZINESS [None]
